FAERS Safety Report 11680755 (Version 2)
Quarter: 2015Q4

REPORT INFORMATION
  Report Type: Spontaneous
  Country: US (occurrence: US)
  Receive Date: 20151027
  Receipt Date: 20151104
  Transmission Date: 20160304
  Serious: No
  Sender: FDA-Public Use
  Company Number: US-ELI_LILLY_AND_COMPANY-US201003006546

PATIENT
  Age: 70 Year
  Sex: Female

DRUGS (5)
  1. FORTEO [Suspect]
     Active Substance: TERIPARATIDE
     Indication: OSTEOPOROSIS
     Dosage: 20 UG, QD
     Route: 065
     Dates: start: 200909, end: 201001
  2. FORTEO [Suspect]
     Active Substance: TERIPARATIDE
     Dosage: 20 UG, QD
     Dates: start: 20110411
  3. CELLCEPT [Concomitant]
     Active Substance: MYCOPHENOLATE MOFETIL\MYCOPHENOLATE MOFETIL HYDROCHLORIDE
     Indication: MULTIPLE SCLEROSIS
     Dosage: UNK, UNKNOWN
  4. PREDNISONE. [Concomitant]
     Active Substance: PREDNISONE
  5. OXYCONTIN [Concomitant]
     Active Substance: OXYCODONE HYDROCHLORIDE
     Indication: PAIN

REACTIONS (17)
  - Muscle spasticity [Unknown]
  - Dizziness [Recovering/Resolving]
  - Middle insomnia [Unknown]
  - Burning sensation [Unknown]
  - Nervousness [Unknown]
  - Anxiety [Unknown]
  - Agitation [Unknown]
  - Arthralgia [Unknown]
  - Dizziness [Unknown]
  - Muscle spasticity [Unknown]
  - Back pain [Unknown]
  - Intentional product misuse [Unknown]
  - Feeling jittery [Unknown]
  - Pain [Unknown]
  - Muscle spasms [Unknown]
  - Insomnia [Unknown]
  - Spinal column stenosis [Unknown]

NARRATIVE: CASE EVENT DATE: 201001
